FAERS Safety Report 11894143 (Version 2)
Quarter: 2016Q1

REPORT INFORMATION
  Report Type: Spontaneous
  Country: US (occurrence: US)
  Receive Date: 20160107
  Receipt Date: 20160119
  Transmission Date: 20160526
  Serious: Yes (Hospitalization)
  Sender: FDA-Public Use
  Company Number: US-DRREDDYS-USA/USA/16/0055209

PATIENT
  Age: 31 Year
  Sex: Female

DRUGS (1)
  1. AMLODPINE + LOSARTAN [Suspect]
     Active Substance: AMLODIPINE\LOSARTAN
     Indication: PRODUCT USED FOR UNKNOWN INDICATION
     Route: 065

REACTIONS (3)
  - Shock [Recovered/Resolved]
  - Intentional overdose [Unknown]
  - Headache [Unknown]
